FAERS Safety Report 8827243 (Version 2)
Quarter: 2012Q4

REPORT INFORMATION
  Report Type: Report from Study
  Country: IN (occurrence: IN)
  Receive Date: 20121005
  Receipt Date: 20121120
  Transmission Date: 20130627
  Serious: Yes (Death, Hospitalization)
  Sender: FDA-Public Use
  Company Number: IN-ABBOTT-12P-078-0983488-00

PATIENT
  Age: 41 Year
  Sex: Female

DRUGS (9)
  1. ALUVIA [Suspect]
     Indication: HIV INFECTION
     Dosage: 100/25
     Route: 048
     Dates: start: 20110902
  2. ABAMONE-L (ABC + 3TC) [Concomitant]
     Indication: ANTIRETROVIRAL THERAPY
     Dosage: 600mg
     Route: 048
     Dates: start: 20110902
  3. RIFABUTIN [Concomitant]
     Indication: PULMONARY TUBERCULOSIS
     Dosage: 150mg
     Dates: start: 20120621
  4. ISONIAZID [Concomitant]
     Indication: PULMONARY TUBERCULOSIS
     Dosage: 300mg
     Dates: start: 20120620
  5. CIPLIN DS [Concomitant]
     Indication: ANTIFUNGAL PROPHYLAXIS
     Dosage: 960mg
     Dates: start: 20071228
  6. COBADEX [Concomitant]
     Indication: VITAMIN SUPPLEMENTATION
     Dosage: 1 tab
     Dates: start: 20071228
  7. LIVOGEN [Concomitant]
     Indication: MINERAL SUPPLEMENTATION
     Dates: start: 20120820
  8. LASIX [Concomitant]
     Indication: RENAL FAILURE
     Dosage: 20mg
     Dates: start: 20120818
  9. RAMIPRIL [Concomitant]
     Indication: RENAL FAILURE
     Dosage: 2.5mg
     Dates: start: 20120724

REACTIONS (3)
  - Cardio-respiratory arrest [Fatal]
  - Dyspnoea [Fatal]
  - Swelling face [Fatal]
